FAERS Safety Report 10234613 (Version 5)
Quarter: 2015Q2

REPORT INFORMATION
  Report Type: Report from Study
  Country: CZ (occurrence: CZ)
  Receive Date: 20140613
  Receipt Date: 20150403
  Transmission Date: 20150821
  Serious: Yes (Hospitalization)
  Sender: FDA-Public Use
  Company Number: CZ-ROCHE-1127018

PATIENT
  Age: 38 Year
  Sex: Female
  Weight: 68 kg

DRUGS (16)
  1. OBINUTUZUMAB [Suspect]
     Active Substance: OBINUTUZUMAB
     Indication: B-CELL LYMPHOMA
     Dosage: 4 MG/ML, DATE OF MOST RECENT DOSE: 31/AUG/2012.LAST DOSE TAKEN 250 ML
     Route: 042
     Dates: start: 20120607
  2. ROXITHROMYCIN [Concomitant]
     Active Substance: ROXITHROMYCIN
     Indication: SINUSITIS
     Route: 065
     Dates: start: 20121029
  3. DOXORUBICIN [Suspect]
     Active Substance: DOXORUBICIN
     Indication: B-CELL LYMPHOMA
     Dosage: DATE OF MOST RECENT DOSE: 31/AUG/2012.LAST DOSE 85 MG
     Route: 042
     Dates: start: 20120609
  4. VINCRISTINE [Suspect]
     Active Substance: VINCRISTINE
     Indication: B-CELL LYMPHOMA
     Dosage: DATE OF MOST RECENT DOSE: 30/AUG/2012.
     Route: 042
     Dates: start: 20120609
  5. METOCLOPRAMIDI HYDROCHLORIDUM [Concomitant]
     Indication: NAUSEA
     Route: 065
     Dates: start: 20120608
  6. KALIUM CHLORATUM [Concomitant]
     Active Substance: POTASSIUM CHLORIDE
     Indication: HYPOKALAEMIA
     Route: 065
     Dates: start: 20120610
  7. PARACETAMOLUM [Concomitant]
     Route: 065
     Dates: start: 20120611
  8. ALLOPURINOL. [Concomitant]
     Active Substance: ALLOPURINOL
     Indication: TUMOUR LYSIS SYNDROME
     Route: 065
     Dates: start: 20120608, end: 20120810
  9. NEUPOGEN [Concomitant]
     Active Substance: FILGRASTIM
     Route: 065
     Dates: start: 20120818, end: 20120820
  10. NEUPOGEN [Concomitant]
     Active Substance: FILGRASTIM
     Route: 065
     Dates: start: 20120909, end: 20120912
  11. PREDNISONE. [Suspect]
     Active Substance: PREDNISONE
     Indication: B-CELL LYMPHOMA
     Dosage: DATE OF MOST RECENT DOSE: 30/AUG/2012.LAST DSOE TAKEN 100 MG
     Route: 065
     Dates: start: 20120608
  12. OMEPRAZOLUM [Concomitant]
     Indication: NAUSEA
     Route: 065
     Dates: start: 20120608
  13. LACTOBACILLUS [Concomitant]
     Active Substance: LACTOBACILLUS ACIDOPHILUS
     Indication: PROPHYLAXIS
     Route: 065
     Dates: start: 20120808
  14. TRAMADOL HYDROCHLORIDE. [Concomitant]
     Active Substance: TRAMADOL HYDROCHLORIDE
     Indication: BACK PAIN
     Route: 065
     Dates: start: 20130107, end: 20130108
  15. CYCLOPHOSPHAMIDE. [Suspect]
     Active Substance: CYCLOPHOSPHAMIDE
     Indication: B-CELL LYMPHOMA
     Dosage: DATE OF MOST RECENT DOSE: 30/AUG/2012.LAST DOSE 1275 MG
     Route: 042
     Dates: start: 20120609
  16. GRANISETRONI HYDROCHLORIDUM [Concomitant]
     Indication: NAUSEA
     Route: 065
     Dates: start: 20120608

REACTIONS (1)
  - Febrile neutropenia [Recovered/Resolved]

NARRATIVE: CASE EVENT DATE: 20120909
